FAERS Safety Report 6764699-7 (Version None)
Quarter: 2010Q2

REPORT INFORMATION
  Report Type: 
  Country: None (occurrence: None)
  Receive Date: 20100610
  Receipt Date: 20100601
  Transmission Date: 20101027
  Serious: Yes (Other)
  Sender: FDA-Public Use
  Company Number: IE-BAXTER-2010BH007669

PATIENT
  Sex: Female

DRUGS (6)
  1. SODIUM CHLORIDE 0.9% IN PLASTIC CONTAINER [Suspect]
     Indication: COLORECTAL CANCER
     Route: 042
     Dates: start: 20100222, end: 20100222
  2. SODIUM CHLORIDE 0.9% IN PLASTIC CONTAINER [Suspect]
     Route: 042
     Dates: start: 20100302, end: 20100302
  3. SODIUM CHLORIDE 0.9% IN PLASTIC CONTAINER [Suspect]
     Route: 042
     Dates: start: 20100323, end: 20100323
  4. FLUOROURACIL [Suspect]
     Indication: COLORECTAL CANCER
     Route: 042
     Dates: start: 20100222, end: 20100222
  5. FLUOROURACIL [Suspect]
     Route: 042
     Dates: start: 20100323, end: 20100327
  6. FLUOROURACIL [Suspect]
     Route: 042
     Dates: start: 20100302, end: 20100302

REACTIONS (4)
  - FLUID INTAKE REDUCED [None]
  - HYPOPHAGIA [None]
  - MUCOSAL INFLAMMATION [None]
  - PAIN [None]
